FAERS Safety Report 4445540-4 (Version None)
Quarter: 2004Q3

REPORT INFORMATION
  Report Type: 
  Country: None (occurrence: None)
  Receive Date: 20040804
  Receipt Date: 20030808
  Transmission Date: 20050211
  Serious: No
  Sender: FDA-Public Use
  Company Number: 201367

PATIENT
  Age: 51 Year
  Sex: Female
  Weight: 68.9 kg

DRUGS (8)
  1. HERCEPTIN [Suspect]
     Indication: BREAST CANCER METASTATIC
     Dosage: 2 MG/KG 1/WEEK, INTRAVENOUS
     Route: 042
     Dates: start: 19990407, end: 20021216
  2. NEVELBINE (VINORELBINE) [Concomitant]
  3. CARBOPLATIN [Concomitant]
  4. GEMCITABINE (GEMCITABINE HYDROCHLORIDE) [Concomitant]
  5. COUMADIN [Concomitant]
  6. REGLAN [Concomitant]
  7. PREVACID [Concomitant]
  8. EFFEXOR [Concomitant]

REACTIONS (1)
  - EJECTION FRACTION DECREASED [None]
